FAERS Safety Report 6537880-X (Version None)
Quarter: 2010Q1

REPORT INFORMATION
  Report Type: 
  Country: None (occurrence: None)
  Receive Date: 20100111
  Receipt Date: 20090902
  Transmission Date: 20100710
  Serious: Yes (Death, Other)
  Sender: FDA-Public Use
  Company Number: CLOF-1000273

PATIENT
  Age: 69 Year
  Sex: Male
  Weight: 85 kg

DRUGS (6)
  1. EVOLTRA   (CLOFARABINE)        SOLUTION FOR INFUSION [Suspect]
     Indication: ACUTE LEUKAEMIA
     Dosage: 40 MG, QDX5, INTRAVENOUS
     Route: 042
     Dates: start: 20080415, end: 20080419
  2. CLONAZEPAM [Concomitant]
  3. ACYCLOVIR [Concomitant]
  4. FLUCONAZOLE [Concomitant]
  5. ALLOPURINOL [Concomitant]
  6. OMEPRAZOLE [Concomitant]

REACTIONS (5)
  - ACUTE LEUKAEMIA [None]
  - DISEASE PROGRESSION [None]
  - DRUG TOXICITY [None]
  - NEUTROPENIA [None]
  - THROMBOCYTOPENIA [None]
